FAERS Safety Report 16761467 (Version 1)
Quarter: 2019Q3

REPORT INFORMATION
  Report Type: Report from Study
  Country: US (occurrence: US)
  Receive Date: 20190830
  Receipt Date: 20190830
  Transmission Date: 20191005
  Serious: Yes (Hospitalization, Other)
  Sender: FDA-Public Use
  Company Number: US-BIOVITRUM-2019US1642

PATIENT
  Sex: Male

DRUGS (1)
  1. KINERET [Suspect]
     Active Substance: ANAKINRA
     Route: 058

REACTIONS (5)
  - Gait inability [Not Recovered/Not Resolved]
  - Herpes zoster [Unknown]
  - Dysstasia [Not Recovered/Not Resolved]
  - Urinary tract infection [Unknown]
  - Pharyngitis [Unknown]
